FAERS Safety Report 9940994 (Version 5)
Quarter: 2014Q1

REPORT INFORMATION
  Report Type: Spontaneous
  Country: US (occurrence: US)
  Receive Date: 20140303
  Receipt Date: 20140320
  Transmission Date: 20141002
  Serious: Yes (Death, Hospitalization, Other)
  Sender: FDA-Public Use
  Company Number: US-JNJFOC-20140218364

PATIENT
  Sex: Male
  Weight: 78.93 kg

DRUGS (4)
  1. XARELTO [Suspect]
     Indication: CEREBROVASCULAR ACCIDENT PROPHYLAXIS
     Route: 048
  2. XARELTO [Suspect]
     Indication: ATRIAL FIBRILLATION
     Route: 048
  3. METOPROLOL [Concomitant]
     Indication: CARDIAC DISORDER
     Route: 065
  4. MECLIZINE [Concomitant]
     Indication: DIZZINESS
     Route: 065

REACTIONS (3)
  - Haemorrhage intracranial [Fatal]
  - Cerebrovascular accident [Unknown]
  - Haemorrhage [Unknown]
